FAERS Safety Report 12922831 (Version 1)
Quarter: 2016Q4

REPORT INFORMATION
  Report Type: Spontaneous
  Country: US (occurrence: US)
  Receive Date: 20161109
  Receipt Date: 20161109
  Transmission Date: 20170207
  Serious: No
  Sender: FDA-Public Use
  Company Number: US-BIOGEN-2016BI00314059

PATIENT
  Sex: Female

DRUGS (1)
  1. TECFIDERA [Suspect]
     Active Substance: DIMETHYL FUMARATE
     Indication: MULTIPLE SCLEROSIS
     Route: 048
     Dates: start: 20161019, end: 20161031

REACTIONS (6)
  - Urticaria [Unknown]
  - Abdominal pain upper [Unknown]
  - Ear discomfort [Unknown]
  - Headache [Unknown]
  - Stress [Unknown]
  - Flushing [Unknown]
